FAERS Safety Report 16835243 (Version 1)
Quarter: 2019Q3

REPORT INFORMATION
  Report Type: Spontaneous
  Country: US (occurrence: US)
  Receive Date: 20190920
  Receipt Date: 20190920
  Transmission Date: 20191005
  Serious: No
  Sender: FDA-Public Use
  Company Number: US-TEVA-2019-US-1110079

PATIENT
  Age: 72 Year
  Sex: Male

DRUGS (3)
  1. BENDEKA [Suspect]
     Active Substance: BENDAMUSTINE HYDROCHLORIDE
     Route: 065
  2. RITUXIMAB. [Concomitant]
     Active Substance: RITUXIMAB
     Indication: NON-HODGKIN^S LYMPHOMA
     Dosage: 2 DAYS PER MONTH FOR A TOTAL OF 4 MONTHS, THEN HE BEGAN RECEIVING RITUXIMAB ONLY EVERY 2 MONTHS
  3. TREANDA [Suspect]
     Active Substance: BENDAMUSTINE HYDROCHLORIDE
     Indication: NON-HODGKIN^S LYMPHOMA
     Dosage: 2 DAYS PER MONTH FOR A TOTAL OF 4 MONTHS
     Route: 065

REACTIONS (3)
  - Urticaria [Not Recovered/Not Resolved]
  - Extravasation [Not Recovered/Not Resolved]
  - Discomfort [Not Recovered/Not Resolved]
